FAERS Safety Report 8075579-1 (Version None)
Quarter: 2012Q1

REPORT INFORMATION
  Report Type: 
  Country: None (occurrence: None)
  Receive Date: 20120127
  Receipt Date: 20120116
  Transmission Date: 20120608
  Serious: Yes (Life-Threatening)
  Sender: FDA-Public Use
  Company Number: JP-UCBSA-050218

PATIENT
  Age: 85 Year
  Sex: Male

DRUGS (9)
  1. CERTOLIZUMAB PEGOL [Suspect]
     Indication: RHEUMATOID ARTHRITIS
     Route: 058
     Dates: start: 20091219
  2. METHOTREXATE [Concomitant]
     Dosage: DAILY DOSE: 6 MG
     Dates: start: 20110829
  3. CERTOLIZUMAB PEGOL [Suspect]
     Route: 058
  4. DIQUAFOSOL SODIUM [Concomitant]
     Dosage: QS
     Dates: start: 20110719
  5. ALLOPURINOL [Concomitant]
     Dosage: DAILY DOSE:100 MG
  6. ALLOPURINOL [Concomitant]
     Dosage: DAILY DOSE:50 MG
  7. REBAMIPIDE [Concomitant]
     Dosage: DAILY DOSE:100 MG
     Dates: start: 20110826
  8. CERTOLIZUMAB PEGOL [Suspect]
     Route: 058
  9. SODIUM HYALURONATE [Concomitant]
     Dosage: QS
     Dates: start: 20110719

REACTIONS (1)
  - GASTRIC CANCER [None]
